FAERS Safety Report 5910975-7 (Version None)
Quarter: 2008Q4

REPORT INFORMATION
  Report Type: 
  Country: None (occurrence: None)
  Receive Date: 20081003
  Receipt Date: 20081003
  Transmission Date: 20090506
  Serious: Yes (Hospitalization)
  Sender: FDA-Public Use
  Company Number: None

PATIENT
  Age: 39 Year
  Sex: Male
  Weight: 77.1115 kg

DRUGS (1)
  1. CEFDINIR [Suspect]
     Dosage: 2 CAPSULES DAILY PO
     Route: 048
     Dates: start: 20080918, end: 20080927

REACTIONS (4)
  - CHEST PAIN [None]
  - GAIT DISTURBANCE [None]
  - THROAT TIGHTNESS [None]
  - URTICARIA [None]
